FAERS Safety Report 6862180-8 (Version None)
Quarter: 2010Q3

REPORT INFORMATION
  Report Type: 
  Country: None (occurrence: None)
  Receive Date: 20100721
  Receipt Date: 20100714
  Transmission Date: 20110219
  Serious: Yes (Death)
  Sender: FDA-Public Use
  Company Number: GB-TEVA-241561ISR

PATIENT
  Age: 86 Year
  Sex: Female

DRUGS (2)
  1. DOXYCYCLINE [Suspect]
     Indication: INFECTION
  2. INSULIN GLARGINE [Interacting]
     Route: 058

REACTIONS (3)
  - DEATH [None]
  - DRUG INTERACTION [None]
  - HYPOGLYCAEMIA [None]
